FAERS Safety Report 5153686-0 (Version None)
Quarter: 2006Q4

REPORT INFORMATION
  Report Type: 
  Country: None (occurrence: None)
  Receive Date: 20061114
  Receipt Date: 20061005
  Transmission Date: 20070319
  Serious: Yes (Other)
  Sender: FDA-Public Use
  Company Number: 2006SP000120

PATIENT
  Age: 62 Year
  Sex: Male

DRUGS (2)
  1. PEGETRON (PEGINTERFERON ALFA-2B W/RIBAVIRIN) (PEGYLATED INTERFERON ALF [Suspect]
     Dosage: 150 MCG;QW;SC
     Route: 058
     Dates: start: 20060420, end: 20060901
  2. RIBAVIRIN [Suspect]
     Indication: HEPATITIS C
     Dosage: PO
     Route: 048
     Dates: start: 20060420

REACTIONS (6)
  - AMNESIA [None]
  - ANXIETY [None]
  - FATIGUE [None]
  - NEUTROPHIL COUNT DECREASED [None]
  - PARANOIA [None]
  - RASH GENERALISED [None]
